FAERS Safety Report 15483801 (Version 1)
Quarter: 2020Q3

REPORT INFORMATION
  Report Type: Spontaneous
  Country: ZA (occurrence: ZA)
  Receive Date: 20181010
  Receipt Date: 20181010
  Transmission Date: 20201104
  Serious: Yes (Other)
  Sender: FDA-Public Use
  Company Number: ZA-SA-2018SA277061

PATIENT
  Sex: Female

DRUGS (7)
  1. DICLOFENAC SODIUM. [Suspect]
     Active Substance: DICLOFENAC SODIUM
     Dosage: UNK
  2. CHLOROQUINE. [Suspect]
     Active Substance: CHLOROQUINE
  3. ISONIAZID. [Suspect]
     Active Substance: ISONIAZID
     Dosage: UNK
     Dates: start: 20180628
  4. METHOTREXATE. [Suspect]
     Active Substance: METHOTREXATE
  5. SULFASALAZINE. [Suspect]
     Active Substance: SULFASALAZINE
     Dosage: UNK
  6. ARAVA [Suspect]
     Active Substance: LEFLUNOMIDE
  7. ETORICOXIB. [Suspect]
     Active Substance: ETORICOXIB

REACTIONS (3)
  - Pain [Unknown]
  - Meniscus injury [Unknown]
  - Drug ineffective [Unknown]
